FAERS Safety Report 20535703 (Version 1)
Quarter: 2022Q1

REPORT INFORMATION
  Report Type: Report from Study
  Country: DK (occurrence: DK)
  Receive Date: 20220302
  Receipt Date: 20220302
  Transmission Date: 20220423
  Serious: Yes (Other)
  Sender: FDA-Public Use
  Company Number: DK-JNJFOC-20211041659

PATIENT

DRUGS (1)
  1. DARATUMUMAB [Suspect]
     Active Substance: DARATUMUMAB
     Indication: Plasma cell myeloma
     Route: 065

REACTIONS (21)
  - Myelosuppression [Unknown]
  - Neuropathy peripheral [Unknown]
  - Thrombosis [Unknown]
  - Renal impairment [Unknown]
  - Osteonecrosis [Unknown]
  - Cutaneous vasculitis [Unknown]
  - Cardiovascular disorder [Unknown]
  - Cytogenetic abnormality [Unknown]
  - Drug ineffective [Unknown]
  - Gastrointestinal disorder [Unknown]
  - Musculoskeletal disorder [Unknown]
  - Psychiatric symptom [Unknown]
  - Skin disorder [Unknown]
  - Nervous system disorder [Unknown]
  - Respiratory disorder [Unknown]
  - Giant cell arteritis [Unknown]
  - Dyspnoea [Unknown]
  - Infection [Unknown]
  - Headache [Unknown]
  - Infusion related reaction [Unknown]
  - Fatigue [Unknown]
